FAERS Safety Report 14274786 (Version 2)
Quarter: 2018Q1

REPORT INFORMATION
  Report Type: Other
  Country: US (occurrence: US)
  Receive Date: 20171212
  Receipt Date: 20180123
  Transmission Date: 20180508
  Serious: Yes (Other)
  Sender: FDA-Public Use
  Company Number: US-INTERCEPT-PMOCA2017001371

PATIENT

DRUGS (8)
  1. URSODIOL. [Concomitant]
     Active Substance: URSODIOL
     Dosage: 500 MG, BID
  2. AZATHIOPRINE. [Concomitant]
     Active Substance: AZATHIOPRINE
     Dosage: 50 MG, QD
  3. COLESTID [Concomitant]
     Active Substance: COLESTIPOL HYDROCHLORIDE
     Dosage: 2 G, BID
  4. OCALIVA [Suspect]
     Active Substance: OBETICHOLIC ACID
     Indication: PRIMARY BILIARY CHOLANGITIS
     Dosage: 5 MG, QD
     Route: 048
     Dates: start: 20160822, end: 20171116
  5. OMEPRAZOLE. [Concomitant]
     Active Substance: OMEPRAZOLE
     Dosage: 20 MG, BID
     Route: 048
  6. BENADRYL ALLERGY [Concomitant]
     Active Substance: DIPHENHYDRAMINE HYDROCHLORIDE
     Dosage: 25 MG, UNK
  7. LEVOTHYROXINE. [Concomitant]
     Active Substance: LEVOTHYROXINE
     Dosage: 100 MCG, UNK
  8. HYDROXYZINE HCL [Concomitant]
     Active Substance: HYDROXYZINE HYDROCHLORIDE
     Dosage: 25 MG, BID
     Route: 048

REACTIONS (14)
  - Blood alkaline phosphatase increased [Unknown]
  - Gastrooesophageal reflux disease [Unknown]
  - Hepatic enzyme increased [Unknown]
  - Dysphagia [Unknown]
  - Asthenia [Unknown]
  - Dyspnoea [Unknown]
  - Oesophagitis [Unknown]
  - Pruritus [Unknown]
  - Vomiting [Unknown]
  - Abdominal pain upper [Unknown]
  - Nausea [Unknown]
  - Scratch [Unknown]
  - Blood cholesterol increased [Unknown]
  - Rash [Unknown]
